FAERS Safety Report 20171417 (Version 2)
Quarter: 2022Q1

REPORT INFORMATION
  Report Type: Spontaneous
  Country: JP (occurrence: JP)
  Receive Date: 20211210
  Receipt Date: 20220107
  Transmission Date: 20220423
  Serious: Yes (Other)
  Sender: FDA-Public Use
  Company Number: JP-BAYER-2021A265028

PATIENT
  Age: 22 Year
  Sex: Female

DRUGS (2)
  1. STIVARGA [Suspect]
     Active Substance: REGORAFENIB
     Indication: Colon cancer
     Dosage: TAKE 80 MG FOR 3 WEEKS, WITHDRAWAL FOR 2 WEEKS
     Route: 048
     Dates: start: 20211104
  2. STIVARGA [Suspect]
     Active Substance: REGORAFENIB
     Indication: Colon cancer
     Dosage: 120MG
     Route: 048
     Dates: start: 20211209

REACTIONS (5)
  - Colon cancer [None]
  - Vomiting [Unknown]
  - Nausea [Unknown]
  - Gastrointestinal hypomotility [None]
  - Off label use [None]
